FAERS Safety Report 20146537 (Version 1)
Quarter: 2021Q4

REPORT INFORMATION
  Report Type: Spontaneous
  Country: SE (occurrence: SE)
  Receive Date: 20211203
  Receipt Date: 20211203
  Transmission Date: 20220303
  Serious: Yes (Hospitalization)
  Sender: FDA-Public Use
  Company Number: None

PATIENT
  Age: 34 Year
  Sex: Male

DRUGS (6)
  1. ZYPADHERA [Suspect]
     Active Substance: OLANZAPINE PAMOATE
     Indication: Bipolar disorder
     Dosage: 405 MG, OTHER (EVERY 4 WEEKS)
     Route: 030
     Dates: start: 2017
  2. ZYPADHERA [Suspect]
     Active Substance: OLANZAPINE PAMOATE
     Indication: Bipolar disorder
     Dosage: 405 MG, OTHER (EVERY 4 WEEKS)
     Route: 030
     Dates: start: 2017
  3. ZYPADHERA [Suspect]
     Active Substance: OLANZAPINE PAMOATE
     Indication: Bipolar disorder
     Dosage: 405 MG, OTHER (EVERY 4 WEEKS)
     Route: 030
     Dates: start: 2017
  4. ZOPIKLON PILUM [Concomitant]
     Indication: Product used for unknown indication
     Dosage: 7.5 MG, UNKNOWN
     Route: 048
  5. TRIMEPRAZINE TARTRATE [Concomitant]
     Active Substance: TRIMEPRAZINE TARTRATE
     Indication: Product used for unknown indication
     Dosage: 40 MG/ML 0,5-1 VB
     Route: 048
  6. CHOLECALCIFEROL [Concomitant]
     Active Substance: CHOLECALCIFEROL
     Indication: Product used for unknown indication
     Dosage: 2000 IE 1X1
     Route: 048

REACTIONS (4)
  - Vomiting [Recovered/Resolved]
  - Blood pressure decreased [Recovered/Resolved]
  - Loss of consciousness [Recovered/Resolved]
  - Confusional state [Recovered/Resolved]

NARRATIVE: CASE EVENT DATE: 20211108
